FAERS Safety Report 7959628-4 (Version None)
Quarter: 2011Q4

REPORT INFORMATION
  Report Type: 
  Country: None (occurrence: None)
  Receive Date: 20111206
  Receipt Date: 20111121
  Transmission Date: 20120403
  Serious: Yes (Hospitalization)
  Sender: FDA-Public Use
  Company Number: US-JUTA GMBH-2011-20420

PATIENT
  Age: 65 Year
  Sex: Female

DRUGS (2)
  1. CITALOPRAM HYDROBROMIDE [Suspect]
     Indication: DEPRESSION
     Dosage: 20 MG, DAILY
     Route: 065
  2. HYDROXYCUT [Suspect]
     Indication: WEIGHT DECREASED
     Dosage: UNKNOWN

REACTIONS (2)
  - CEREBRAL VASOCONSTRICTION [None]
  - DRUG INTERACTION [None]
